FAERS Safety Report 4595670-1 (Version None)
Quarter: 2005Q1

REPORT INFORMATION
  Report Type: 
  Country: None (occurrence: None)
  Receive Date: 20050302
  Receipt Date: 20050218
  Transmission Date: 20050727
  Serious: Yes (Death, Other)
  Sender: FDA-Public Use
  Company Number: US-JNJFOC-20050205279

PATIENT
  Age: 56 Year
  Sex: Female

DRUGS (3)
  1. REOPRO [Suspect]
     Route: 042
  2. HEPARIN [Concomitant]
  3. ASPIRIN [Concomitant]

REACTIONS (2)
  - CEREBROVASCULAR ACCIDENT [None]
  - THROMBOCYTOPENIA [None]
